FAERS Safety Report 7298530-0 (Version None)
Quarter: 2011Q1

REPORT INFORMATION
  Report Type: 
  Country: None (occurrence: None)
  Receive Date: 20110217
  Receipt Date: 20110214
  Transmission Date: 20110831
  Serious: Yes (Other)
  Sender: FDA-Public Use
  Company Number: US-JNJFOC-20101100338

PATIENT
  Sex: Male

DRUGS (1)
  1. LEVAQUIN [Suspect]
     Indication: RESPIRATORY TRACT INFECTION
     Route: 048

REACTIONS (3)
  - TENDON RUPTURE [None]
  - TENDON DISORDER [None]
  - MENISCUS LESION [None]
